FAERS Safety Report 20844426 (Version 1)
Quarter: 2022Q2

REPORT INFORMATION
  Report Type: Report from Study
  Country: US (occurrence: US)
  Receive Date: 20220518
  Receipt Date: 20220518
  Transmission Date: 20220721
  Serious: Yes (Other)
  Sender: FDA-Public Use
  Company Number: US-drreddys-CLI/USA/22/0150131

PATIENT
  Age: 22 Year
  Sex: Female

DRUGS (3)
  1. ZENATANE [Suspect]
     Active Substance: ISOTRETINOIN
     Indication: Product used for unknown indication
     Dosage: RMA ISSUE DATE: 04 APRIL 2022 04:41:43 PM
     Dates: start: 20220404
  2. MYORISAN [Suspect]
     Active Substance: ISOTRETINOIN
     Indication: Product used for unknown indication
     Dosage: RMA ISSUE DATE: 02 MARCH 2022 04:30:07 PM, 04 APRIL 2022 04:41:43 PM
     Dates: start: 20220302
  3. MYORISAN [Suspect]
     Active Substance: ISOTRETINOIN
     Dosage: RMA ISSUE DATE: 02 MARCH 2022 04:30:07 PM

REACTIONS (1)
  - Exposure during pregnancy [Unknown]

NARRATIVE: CASE EVENT DATE: 20220504
